FAERS Safety Report 8155571-9 (Version None)
Quarter: 2012Q1

REPORT INFORMATION
  Report Type: 
  Country: None (occurrence: None)
  Receive Date: 20120222
  Receipt Date: 20120210
  Transmission Date: 20120608
  Serious: Yes (Other)
  Sender: FDA-Public Use
  Company Number: US-JNJFOC-20120206219

PATIENT
  Sex: Female
  Weight: 76.2 kg

DRUGS (1)
  1. REMICADE [Suspect]
     Indication: RHEUMATOID ARTHRITIS
     Dosage: 7 VIALS
     Route: 042
     Dates: end: 20120101

REACTIONS (3)
  - PYREXIA [None]
  - BREAST OPERATION [None]
  - POST PROCEDURAL INFECTION [None]
